FAERS Safety Report 20663611 (Version 3)
Quarter: 2022Q2

REPORT INFORMATION
  Report Type: Spontaneous
  Country: US (occurrence: None)
  Receive Date: 20220401
  Receipt Date: 20220519
  Transmission Date: 20220721
  Serious: Yes (Other)
  Sender: FDA-Public Use
  Company Number: 2022A110194

PATIENT
  Age: 54 Year
  Sex: Female
  Weight: 89.8 kg

DRUGS (4)
  1. BYETTA [Suspect]
     Active Substance: EXENATIDE
     Dosage: 10MCG2.4ML UNKNOWN
     Route: 058
  2. BYETTA [Suspect]
     Active Substance: EXENATIDE
     Dosage: 10MCG10.0UG UNKNOWN
     Route: 058
     Dates: start: 20210113
  3. JARDIANCE [Suspect]
     Active Substance: EMPAGLIFLOZIN
     Indication: Diabetes mellitus
     Dosage: 25.0MG UNKNOWN
     Route: 065
     Dates: start: 20210518
  4. LANTUS SOLOSTAR [Concomitant]
     Active Substance: INSULIN GLARGINE
     Indication: Diabetes mellitus
     Dosage: 15.0MG UNKNOWN
     Route: 065
     Dates: start: 2017

REACTIONS (3)
  - Euglycaemic diabetic ketoacidosis [Recovered/Resolved]
  - Device difficult to use [Unknown]
  - Device issue [Unknown]

NARRATIVE: CASE EVENT DATE: 20210803
